FAERS Safety Report 5318820-8 (Version None)
Quarter: 2007Q2

REPORT INFORMATION
  Report Type: 
  Country: None (occurrence: None)
  Receive Date: 20070504
  Receipt Date: 20070504
  Transmission Date: 20071010
  Serious: No
  Sender: FDA-Public Use
  Company Number: None

PATIENT
  Age: 26 Year
  Sex: Male
  Weight: 68 kg

DRUGS (1)
  1. IOVERSOL INJECTION 68%  -OPTIRAY-320-    MALLINCKRODT INC. [Suspect]
     Indication: COMPUTERISED TOMOGRAM ABDOMEN
     Dosage: 99 ML   ONCE   IV BOLUS
     Route: 040
     Dates: start: 20070203

REACTIONS (15)
  - AGITATION [None]
  - ANAPHYLACTIC REACTION [None]
  - ANOXIC ENCEPHALOPATHY [None]
  - APNOEIC ATTACK [None]
  - APPENDICECTOMY [None]
  - APRAXIA [None]
  - BRAIN OEDEMA [None]
  - COMMUNICATION DISORDER [None]
  - CONVULSION [None]
  - LOSS OF CONSCIOUSNESS [None]
  - MEMORY IMPAIRMENT [None]
  - POSTURING [None]
  - PULSE ABSENT [None]
  - PYREXIA [None]
  - VISUAL ACUITY REDUCED [None]
